FAERS Safety Report 8376515-0 (Version None)
Quarter: 2012Q2

REPORT INFORMATION
  Report Type: 
  Country: None (occurrence: None)
  Receive Date: 20120522
  Receipt Date: 20120507
  Transmission Date: 20120825
  Serious: No
  Sender: FDA-Public Use
  Company Number: US-ENDO PHARMACEUTICALS INC.-OPER20120614

PATIENT
  Sex: Male

DRUGS (6)
  1. OPANA ER [Suspect]
     Indication: BACK PAIN
     Route: 048
     Dates: start: 20110701, end: 20110101
  2. OPANA ER [Suspect]
     Route: 048
  3. OPANA ER [Suspect]
     Indication: ARTHRALGIA
     Route: 048
     Dates: start: 20110101
  4. OPANA ER [Suspect]
     Route: 048
  5. OPANA ER [Suspect]
     Route: 048
  6. OXYCODONE HCL AND ACETAMINOPHEN [Concomitant]
     Indication: BREAKTHROUGH PAIN
     Dosage: 10/325 MG
     Route: 048

REACTIONS (3)
  - DRUG TOLERANCE [None]
  - WITHDRAWAL SYNDROME [None]
  - DRUG INEFFECTIVE [None]
